FAERS Safety Report 16938088 (Version 1)
Quarter: 2019Q4

REPORT INFORMATION
  Report Type: Other
  Country: ES (occurrence: ES)
  Receive Date: 20191018
  Receipt Date: 20191018
  Transmission Date: 20200122
  Serious: Yes (Other)
  Sender: FDA-Public Use
  Company Number: ES-B.BRAUN MEDICAL INC.-2075839

PATIENT
  Age: 63 Year
  Sex: Female

DRUGS (10)
  1. MEPIVACAINE [Concomitant]
     Active Substance: MEPIVACAINE HYDROCHLORIDE
  2. PROPOFOL. [Concomitant]
     Active Substance: PROPOFOL
  3. MORPHINE SULFATE. [Concomitant]
     Active Substance: MORPHINE SULFATE
     Route: 058
  4. FENTANYL. [Concomitant]
     Active Substance: FENTANYL
  5. ROCURONIUM [Concomitant]
     Active Substance: ROCURONIUM BROMIDE
  6. DEXKETAPROFEN [Concomitant]
  7. PARACETAMOL [Concomitant]
     Active Substance: ACETAMINOPHEN
  8. BUPIVACAINE HYDROCHLORIDE WITH DEXTROSE [Suspect]
     Active Substance: BUPIVACAINE HYDROCHLORIDE
     Indication: NERVE BLOCK
  9. MIDAZOLAM [Concomitant]
     Active Substance: MIDAZOLAM HYDROCHLORIDE
     Route: 042
  10. FENTANYL. [Concomitant]
     Active Substance: FENTANYL

REACTIONS (1)
  - Brachial plexopathy [None]
